FAERS Safety Report 8285267-4 (Version None)
Quarter: 2012Q2

REPORT INFORMATION
  Report Type: 
  Country: None (occurrence: None)
  Receive Date: 20120413
  Receipt Date: 20111019
  Transmission Date: 20120825
  Serious: Yes (Other)
  Sender: FDA-Public Use
  Company Number: US-ASTRAZENECA-2011SE63306

PATIENT
  Age: 86 Year
  Sex: Female
  Weight: 58.1 kg

DRUGS (4)
  1. NEXIUM [Suspect]
     Indication: GASTRITIS
     Route: 048
     Dates: start: 20040101
  2. METOPROLOL TARTRATE [Concomitant]
  3. ASPIRIN [Concomitant]
  4. LOSARTAN POTASSIUM [Concomitant]
     Dosage: 100/25 MG DAILY

REACTIONS (8)
  - DIARRHOEA [None]
  - ABDOMINAL PAIN UPPER [None]
  - THERAPY CESSATION [None]
  - HEART VALVE INCOMPETENCE [None]
  - LOWER LIMB FRACTURE [None]
  - CARDIAC DISORDER [None]
  - CONTUSION [None]
  - INCORRECT DRUG ADMINISTRATION DURATION [None]
